FAERS Safety Report 15966398 (Version 1)
Quarter: 2019Q1

REPORT INFORMATION
  Report Type: Spontaneous
  Country: US (occurrence: US)
  Receive Date: 20190214
  Receipt Date: 20190214
  Transmission Date: 20190418
  Serious: Yes (Other)
  Sender: FDA-Public Use
  Company Number: None

PATIENT
  Age: 61 Year
  Sex: Female
  Weight: 76.05 kg

DRUGS (17)
  1. PEG 3350 [Concomitant]
     Active Substance: POLYETHYLENE GLYCOL 3350
  2. OMEGA 3 [Concomitant]
     Active Substance: OMEGA-3 FATTY ACIDS
  3. SIMVASTATIN. [Concomitant]
     Active Substance: SIMVASTATIN
  4. NOVOLOG [Concomitant]
     Active Substance: INSULIN ASPART
  5. MELOXICAM. [Concomitant]
     Active Substance: MELOXICAM
  6. DIAZEPAM. [Concomitant]
     Active Substance: DIAZEPAM
  7. ASPIRIN. [Concomitant]
     Active Substance: ASPIRIN
  8. BASAGLAR [Concomitant]
     Active Substance: INSULIN GLARGINE
  9. BUPROPION. [Concomitant]
     Active Substance: BUPROPION
  10. TRAZODONE [Concomitant]
     Active Substance: TRAZODONE HYDROCHLORIDE
  11. FENOFIBRIC [Concomitant]
     Active Substance: FENOFIBRIC ACID
  12. LISINOPRIL. [Concomitant]
     Active Substance: LISINOPRIL
  13. CAPECITABINE. [Suspect]
     Active Substance: CAPECITABINE
     Indication: BREAST CANCER FEMALE
     Route: 048
     Dates: start: 20190123, end: 20190212
  14. BENZTROPINE. [Concomitant]
     Active Substance: BENZTROPINE
  15. CALCIUM CITRATE [Concomitant]
     Active Substance: CALCIUM CITRATE
  16. ONDANSETRON [Concomitant]
     Active Substance: ONDANSETRON
  17. METFORMIN [Concomitant]
     Active Substance: METFORMIN HYDROCHLORIDE

REACTIONS (1)
  - Disease progression [None]

NARRATIVE: CASE EVENT DATE: 20190212
